FAERS Safety Report 18312877 (Version 1)
Quarter: 2020Q3

REPORT INFORMATION
  Report Type: Report from Study
  Country: CA (occurrence: CA)
  Receive Date: 20200925
  Receipt Date: 20200925
  Transmission Date: 20201103
  Serious: Yes (Other)
  Sender: FDA-Public Use
  Company Number: CA-JNJFOC-20200322311

PATIENT
  Age: 46 Year
  Sex: Male
  Weight: 83.2 kg

DRUGS (2)
  1. REMICADE [Suspect]
     Active Substance: INFLIXIMAB
     Indication: CROHN^S DISEASE
     Route: 042
     Dates: start: 20180403
  2. REMICADE [Suspect]
     Active Substance: INFLIXIMAB
     Dosage: PATIENT RECEIVED INFUSION ON 28?MAY?2020
     Route: 042
     Dates: start: 20180403

REACTIONS (3)
  - Influenza [Recovering/Resolving]
  - Lower respiratory tract infection [Recovered/Resolved]
  - Intentional dose omission [Unknown]

NARRATIVE: CASE EVENT DATE: 20200313
